FAERS Safety Report 11193430 (Version 1)
Quarter: 2015Q2

REPORT INFORMATION
  Report Type: Spontaneous
  Country: US (occurrence: US)
  Receive Date: 20150616
  Receipt Date: 20150616
  Transmission Date: 20150821
  Serious: Yes (Death)
  Sender: FDA-Public Use
  Company Number: US-ASTELLAS-2015US020673

PATIENT
  Age: 84 Year
  Sex: Female

DRUGS (2)
  1. VESICARE [Suspect]
     Active Substance: SOLIFENACIN SUCCINATE
     Indication: STRESS URINARY INCONTINENCE
     Route: 048
     Dates: start: 201207, end: 201504
  2. VESICARE [Suspect]
     Active Substance: SOLIFENACIN SUCCINATE
     Indication: HYPERTONIC BLADDER

REACTIONS (1)
  - Death [Fatal]

NARRATIVE: CASE EVENT DATE: 20150428
